FAERS Safety Report 4289617-5 (Version None)
Quarter: 2004Q1

REPORT INFORMATION
  Report Type: 
  Country: None (occurrence: None)
  Receive Date: 20040126
  Receipt Date: 20030930
  Transmission Date: 20041129
  Serious: No
  Sender: FDA-Public Use
  Company Number: USA030948684

PATIENT
  Age: 79 Year
  Sex: Female
  Weight: 49 kg

DRUGS (9)
  1. FORTEO [Suspect]
     Indication: OSTEOPOROSIS
     Dosage: 20 UG/DAY
     Dates: start: 20030910
  2. PROPOXYPHENE HCL [Concomitant]
  3. PROCARDIA [Concomitant]
  4. ICAPS [Concomitant]
  5. ASPIRIN [Concomitant]
  6. REGLAN [Concomitant]
  7. ACIPHEX [Concomitant]
  8. SKELAXIN [Concomitant]
  9. ONE-A-DAY [Concomitant]

REACTIONS (2)
  - PRURITUS [None]
  - RASH ERYTHEMATOUS [None]
